FAERS Safety Report 9709788 (Version 3)
Quarter: 2013Q4

REPORT INFORMATION
  Report Type: Spontaneous
  Country: NO (occurrence: NO)
  Receive Date: 20131126
  Receipt Date: 20131213
  Transmission Date: 20140711
  Serious: Yes (Hospitalization, Other)
  Sender: FDA-Public Use
  Company Number: NO-ACCORD-020336

PATIENT
  Age: 81 Year
  Sex: Male

DRUGS (4)
  1. METHYLPREDNISOLONE [Concomitant]
     Indication: GRANULOMATOSIS WITH POLYANGIITIS
  2. MYCOPHENOLATE MOFETIL [Suspect]
     Indication: ANTI-NEUTROPHIL CYTOPLASMIC ANTIBODY POSITIVE VASCULITIS
     Dosage: 1500 MG, UNK
     Dates: start: 201104, end: 2011
  3. RITUXIMAB [Suspect]
     Indication: ANTI-NEUTROPHIL CYTOPLASMIC ANTIBODY POSITIVE VASCULITIS
     Dosage: TWO 1 GM INFUSIONS 2 WEEKS APART
     Route: 065
  4. PREDNISOLONE [Suspect]
     Indication: ANTI-NEUTROPHIL CYTOPLASMIC ANTIBODY POSITIVE VASCULITIS
     Route: 048
     Dates: start: 201104

REACTIONS (3)
  - Respiratory tract infection fungal [Recovered/Resolved]
  - Off label use [Unknown]
  - Granulomatosis with polyangiitis [Recovered/Resolved]
